FAERS Safety Report 21618667 (Version 1)
Quarter: 2022Q4

REPORT INFORMATION
  Report Type: Report from Study
  Country: US (occurrence: US)
  Receive Date: 20221119
  Receipt Date: 20221119
  Transmission Date: 20230113
  Serious: No
  Sender: FDA-Public Use
  Company Number: US-ABBVIE-4159004

PATIENT
  Sex: Female

DRUGS (2)
  1. HUMIRA [Suspect]
     Active Substance: ADALIMUMAB
     Indication: Product used for unknown indication
     Route: 058
  2. Moderna covid -19 vaccine [Concomitant]
     Indication: COVID-19 immunisation
     Dosage: ONCE
     Route: 030

REACTIONS (9)
  - Swelling [Unknown]
  - Pruritus [Unknown]
  - Nervous system disorder [Not Recovered/Not Resolved]
  - Rash [Unknown]
  - Gastrooesophageal reflux disease [Not Recovered/Not Resolved]
  - Osteoarthritis [Not Recovered/Not Resolved]
  - Injection site erythema [Recovering/Resolving]
  - Sleep disorder [Unknown]
  - Muscle disorder [Unknown]
